FAERS Safety Report 21897947 (Version 1)
Quarter: 2023Q1

REPORT INFORMATION
  Report Type: Spontaneous
  Country: CN (occurrence: CN)
  Receive Date: 20230123
  Receipt Date: 20230123
  Transmission Date: 20230417
  Serious: Yes (Hospitalization)
  Sender: FDA-Public Use
  Company Number: CN-PFIZER INC-PV202300011453

PATIENT
  Age: 6 Year
  Sex: Male

DRUGS (2)
  1. METHOTREXATE SODIUM [Suspect]
     Active Substance: METHOTREXATE SODIUM
     Indication: Acute lymphocytic leukaemia
     Dosage: 2.7 G, 1X/DAY
     Dates: start: 20221229, end: 20221229
  2. DEXTROSE [Concomitant]
     Active Substance: DEXTROSE
     Indication: Acute lymphocytic leukaemia
     Dosage: 550 ML, 1X/DAY
     Dates: start: 20221229, end: 20221229

REACTIONS (1)
  - Drug level increased [Recovered/Resolved]

NARRATIVE: CASE EVENT DATE: 20221230
